FAERS Safety Report 9412311 (Version 1)
Quarter: 2013Q3

REPORT INFORMATION
  Report Type: Spontaneous
  Country: US (occurrence: US)
  Receive Date: 20130722
  Receipt Date: 20130722
  Transmission Date: 20140515
  Serious: Yes (Other)
  Sender: FDA-Public Use
  Company Number: PHEH2013US015405

PATIENT
  Sex: Male

DRUGS (9)
  1. RECLAST [Suspect]
     Dosage: UNK
     Route: 042
  2. FLECAINIDE [Concomitant]
  3. DILTIAZEM [Concomitant]
  4. SIMVASTATIN [Concomitant]
  5. PRADAXA [Concomitant]
  6. VITAMIN D [Concomitant]
  7. CALCIUM [Concomitant]
  8. LUTIN [Concomitant]
  9. FISH OIL [Concomitant]

REACTIONS (3)
  - Foot fracture [Unknown]
  - Impaired healing [Unknown]
  - Accident [Unknown]
